FAERS Safety Report 8247165 (Version 2)
Quarter: 2013Q3

REPORT INFORMATION
  Report Type: Report from Study
  Country: US (occurrence: US)
  Receive Date: 20111116
  Receipt Date: 20130929
  Transmission Date: 20140515
  Serious: Yes (Other)
  Sender: FDA-Public Use
  Company Number: PHEH2011US00721

PATIENT
  Age: 23 Year
  Sex: Female
  Weight: 77.51 kg

DRUGS (2)
  1. EXJADE [Suspect]
     Indication: IRON METABOLISM DISORDER
     Dosage: 500 MG, DAILY
     Route: 048
     Dates: start: 20110503
  2. EXJADE [Suspect]
     Indication: IRON OVERLOAD

REACTIONS (4)
  - Asthma [Unknown]
  - Malaise [Unknown]
  - Nasopharyngitis [Unknown]
  - Diarrhoea [Unknown]
